FAERS Safety Report 8287754-1 (Version None)
Quarter: 2012Q2

REPORT INFORMATION
  Report Type: 
  Country: None (occurrence: None)
  Receive Date: 20120411
  Receipt Date: 20120411
  Transmission Date: 20120825
  Serious: Yes (Other)
  Sender: FDA-Public Use
  Company Number: None

PATIENT
  Age: 67 Year
  Sex: Female
  Weight: 50.3493 kg

DRUGS (1)
  1. VENLAFAXINE HCL EXTENDED-RELEASE [Suspect]
     Indication: HYPERTENSION
     Dates: start: 20120213, end: 20120322

REACTIONS (3)
  - DRUG DISPENSING ERROR [None]
  - BLOOD PRESSURE INCREASED [None]
  - WRONG DRUG ADMINISTERED [None]
